FAERS Safety Report 5860972-5 (Version None)
Quarter: 2008Q3

REPORT INFORMATION
  Report Type: 
  Country: None (occurrence: None)
  Receive Date: 20080827
  Receipt Date: 20080116
  Transmission Date: 20090109
  Serious: No
  Sender: FDA-Public Use
  Company Number: US-ABBOTT-08P-163-0433789-00

PATIENT
  Sex: Male
  Weight: 77.18 kg

DRUGS (11)
  1. NIASPAN [Suspect]
     Indication: HIGH DENSITY LIPOPROTEIN INCREASED
     Route: 048
     Dates: start: 20070101
  2. NIASPAN [Suspect]
     Route: 048
     Dates: start: 20010101, end: 20070101
  3. NIASPAN [Suspect]
     Route: 048
     Dates: start: 19940101, end: 20010101
  4. ACETYLSALICYLIC ACID SRT [Concomitant]
     Indication: CARDIOVASCULAR EVENT PROPHYLAXIS
     Route: 048
  5. ATENOLOL [Concomitant]
     Indication: DRUG USE FOR UNKNOWN INDICATION
     Route: 048
  6. CLOPIDOGREL [Concomitant]
     Indication: CARDIOVASCULAR EVENT PROPHYLAXIS
     Route: 048
  7. FINASTERIDE [Concomitant]
     Indication: DRUG USE FOR UNKNOWN INDICATION
     Route: 048
  8. LONOX [Concomitant]
     Indication: DRUG USE FOR UNKNOWN INDICATION
     Route: 048
  9. ALLOPURINOL [Concomitant]
     Indication: GOUT
     Route: 048
  10. INEGY [Concomitant]
     Indication: HIGH DENSITY LIPOPROTEIN INCREASED
     Route: 048
  11. M.V.I. [Concomitant]
     Indication: VITAMIN SUPPLEMENTATION
     Route: 048

REACTIONS (2)
  - FLUSHING [None]
  - MEDICATION RESIDUE [None]
